FAERS Safety Report 19606192 (Version 4)
Quarter: 2021Q3

REPORT INFORMATION
  Report Type: Report from Study
  Country: CN (occurrence: CN)
  Receive Date: 20210725
  Receipt Date: 20210827
  Transmission Date: 20211014
  Serious: Yes (Life-Threatening, Hospitalization)
  Sender: FDA-Public Use
  Company Number: CN-KARYOPHARM THERAPEUTICS, INC.-2021KPT000972

PATIENT
  Age: 55 Year
  Sex: Female

DRUGS (18)
  1. SELINEXOR [Suspect]
     Active Substance: SELINEXOR
     Indication: PLASMA CELL MYELOMA
     Dosage: 80 MG, WEEKLY
     Route: 048
     Dates: start: 20210604, end: 20210719
  2. LIPOSOMAL DOXORUBICIN HCL [Concomitant]
     Active Substance: DOXORUBICIN HYDROCHLORIDE
     Indication: PLASMA CELL MYELOMA
     Dosage: 25 MG/M2, 1 IN 4 WK
     Route: 042
     Dates: start: 20210604, end: 20210719
  3. BICYCLOL [Concomitant]
     Active Substance: BICYCLOL
     Indication: HEPATOBILIARY DISORDER PROPHYLAXIS
     Dosage: 50 MG, TID
     Route: 048
     Dates: start: 20210706
  4. THIAMINE. [Concomitant]
     Active Substance: THIAMINE
     Indication: VITAMIN SUPPLEMENTATION
     Dosage: 10 MG, TID
     Route: 048
     Dates: start: 20210605
  5. POTASSIUM CHLORIDE. [Concomitant]
     Active Substance: POTASSIUM CHLORIDE
     Indication: MINERAL SUPPLEMENTATION
     Dosage: 1 G, BID
     Route: 048
     Dates: start: 20210605
  6. OMEPRAZOLE AND SODIUM BICARBONATE [Concomitant]
     Active Substance: OMEPRAZOLE\SODIUM BICARBONATE
     Indication: GASTROINTESTINAL DISORDER PROPHYLAXIS
     Dosage: 0.02 G, BID
     Route: 048
     Dates: start: 20210706
  7. BAI LING [Concomitant]
     Active Substance: HERBALS
     Indication: RENAL DISORDER PROPHYLAXIS
     Dosage: 1 G, TID
     Route: 048
     Dates: start: 20210706
  8. LIPOSOMAL DOXORUBICIN HCL [Concomitant]
     Active Substance: DOXORUBICIN HYDROCHLORIDE
     Dosage: 25 MG/M2, 1 IN 4 WK
     Route: 042
     Dates: start: 20210722
  9. DEXAMETHASONE. [Concomitant]
     Active Substance: DEXAMETHASONE
     Dosage: 40 MG, WEEKLY
     Route: 065
     Dates: start: 20210722
  10. ASPIRIN ACTAVIS [Concomitant]
     Indication: THROMBOSIS PROPHYLAXIS
     Dosage: 100 MG, QD
     Route: 048
     Dates: start: 20210605
  11. FU FANG ZAO FAN [Concomitant]
     Indication: PLATELET COUNT DECREASED
  12. ENTECAVIR. [Concomitant]
     Active Substance: ENTECAVIR
     Indication: HEPATITIS B
     Dosage: 0.5 G, QD
     Route: 048
     Dates: start: 20210706
  13. FU FANG ZAO FAN [Concomitant]
     Indication: WHITE BLOOD CELL COUNT DECREASED
     Dosage: 1.8 G, TID
     Route: 048
     Dates: start: 20210706
  14. SELINEXOR [Suspect]
     Active Substance: SELINEXOR
     Dosage: 80 MG, WEEKLY
     Route: 048
     Dates: start: 20210722
  15. MECOBALAMIN [Concomitant]
     Active Substance: METHYLCOBALAMIN
     Indication: PROPHYLAXIS
     Dosage: 0.5 MG, TID
     Route: 048
     Dates: start: 20210605
  16. PLATELETS [Concomitant]
     Active Substance: HUMAN PLATELET, ALLOGENIC
     Indication: PLATELET COUNT DECREASED
     Dosage: 1.8 G, TID
     Route: 048
     Dates: start: 20210706
  17. VALACYCLOVIR HCL [Concomitant]
     Active Substance: VALACYCLOVIR HYDROCHLORIDE
     Indication: PROPHYLAXIS
     Dosage: 0.3 G, QD
     Route: 048
     Dates: start: 20210605
  18. DEXAMETHASONE. [Concomitant]
     Active Substance: DEXAMETHASONE
     Indication: PLASMA CELL MYELOMA
     Dosage: 40 MG, WEEKLY
     Route: 065
     Dates: start: 20210604, end: 20210719

REACTIONS (2)
  - White blood cell count decreased [Recovering/Resolving]
  - Platelet count decreased [Recovering/Resolving]

NARRATIVE: CASE EVENT DATE: 20210719
